FAERS Safety Report 8808865 (Version 1)
Quarter: 2012Q4

REPORT INFORMATION
  Report Type: 
  Country: NL (occurrence: NL)
  Receive Date: 20120926
  Receipt Date: 20120926
  Transmission Date: 20130627
  Serious: Yes (Death)
  Sender: FDA-Public Use
  Company Number: PHHY2012NL083379

PATIENT
  Sex: Male

DRUGS (3)
  1. ZOMETA [Suspect]
     Indication: PROSTATE CANCER METASTATIC
     Dosage: 4mg / 100ml once per 28 days
     Dates: start: 20120111
  2. ZOMETA [Suspect]
     Dosage: 4mg / 100ml once per 28 days
     Dates: start: 20120802
  3. ZOMETA [Suspect]
     Dosage: 4mg / 100ml once per 28 days
     Dates: start: 20120829

REACTIONS (1)
  - Death [Fatal]
